FAERS Safety Report 6750047-5 (Version None)
Quarter: 2010Q2

REPORT INFORMATION
  Report Type: 
  Country: None (occurrence: None)
  Receive Date: 20100601
  Receipt Date: 20100520
  Transmission Date: 20101027
  Serious: Yes (Hospitalization, Other)
  Sender: FDA-Public Use
  Company Number: JP-PFIZER INC-2010020255

PATIENT
  Age: 52 Year
  Sex: Female

DRUGS (5)
  1. AZULFIDINE [Suspect]
     Indication: RHEUMATOID ARTHRITIS
     Dosage: 250 MG, 2X/DAY
     Route: 048
     Dates: start: 20090404, end: 20100212
  2. AZULFIDINE [Suspect]
     Dosage: UNK
     Dates: end: 20081001
  3. PREDONINE [Concomitant]
     Route: 048
     Dates: start: 20090404, end: 20090501
  4. PREDNISOLONE [Concomitant]
     Route: 048
     Dates: start: 20090502, end: 20090925
  5. ACTONEL [Concomitant]
     Route: 048
     Dates: start: 20090417

REACTIONS (1)
  - PLEURAL EFFUSION [None]
